FAERS Safety Report 7671311-1 (Version None)
Quarter: 2011Q3

REPORT INFORMATION
  Report Type: 
  Country: None (occurrence: None)
  Receive Date: 20110803
  Receipt Date: 20110725
  Transmission Date: 20111222
  Serious: Yes (Death)
  Sender: FDA-Public Use
  Company Number: B0736181A

PATIENT
  Sex: 0

DRUGS (4)
  1. RADIOTHERAPY (FORMULATION UNKNOWN) (RADIOTHERAPY) [Suspect]
     Indication: ACUTE LEUKAEMIA
  2. MELPHALAN HYDROCHLORIDE [Suspect]
     Indication: ACUTE LEUKAEMIA
     Dosage: INTRAVENOUS
     Route: 042
  3. METHOTREXATE [Concomitant]
  4. STEM CELL TRANSPLANT (FORMULATION UNKNOWN) (STEM CELL TRANSPLANT) [Suspect]
     Indication: ACUTE LEUKAEMIA

REACTIONS (3)
  - THROMBOCYTOPENIA [None]
  - GRANULOCYTOPENIA [None]
  - TOXICITY TO VARIOUS AGENTS [None]
